FAERS Safety Report 13765588 (Version 1)
Quarter: 2017Q3

REPORT INFORMATION
  Report Type: Spontaneous
  Country: US (occurrence: US)
  Receive Date: 20170718
  Receipt Date: 20170718
  Transmission Date: 20171127
  Serious: Yes (Other)
  Sender: FDA-Public Use
  Company Number: US-INTERPRAG-PM-OCA2016-00169

PATIENT

DRUGS (5)
  1. MULTIVITAMIN                       /00097801/ [Concomitant]
     Active Substance: VITAMINS
  2. URSO [Concomitant]
     Active Substance: URSODIOL
  3. CALCIUM [Concomitant]
     Active Substance: CALCIUM
  4. OCALIVA [Suspect]
     Active Substance: OBETICHOLIC ACID
     Dosage: 10 MG, QD
     Route: 048
  5. OCALIVA [Suspect]
     Active Substance: OBETICHOLIC ACID
     Dosage: 5 MG, QD
     Route: 048
     Dates: start: 2016

REACTIONS (6)
  - Blood bilirubin increased [Recovered/Resolved]
  - Malaise [Unknown]
  - Jaundice [Recovering/Resolving]
  - Pruritus [Unknown]
  - Blood alkaline phosphatase increased [Recovered/Resolved]
  - Decreased appetite [Not Recovered/Not Resolved]
